FAERS Safety Report 16198524 (Version 19)
Quarter: 2021Q2

REPORT INFORMATION
  Report Type: Report from Study
  Country: GB (occurrence: GB)
  Receive Date: 20190415
  Receipt Date: 20210517
  Transmission Date: 20210716
  Serious: Yes (Hospitalization, Other)
  Sender: FDA-Public Use
  Company Number: GB-MYLANLABS-2019M1028424

PATIENT
  Age: 56 Year
  Sex: Female

DRUGS (182)
  1. LETROZOLE. [Suspect]
     Active Substance: LETROZOLE
     Indication: HER2 POSITIVE BREAST CANCER
     Dosage: 2.5 MILLIGRAM, QD
     Route: 048
     Dates: start: 20170427
  2. VORHYALURONIDASE ALFA [Suspect]
     Active Substance: HYALURONIDASE (HUMAN RECOMBINANT)
     Indication: BREAST CANCER METASTATIC
     Dosage: 1800 UNK
  3. XGEVA [Suspect]
     Active Substance: DENOSUMAB
     Dosage: 120 MILLIGRAM,Q6WK
     Route: 058
     Dates: start: 20180118
  4. ZOMORPH [Concomitant]
     Active Substance: MORPHINE SULFATE
     Indication: METASTATIC NEOPLASM
     Dosage: UNK
     Route: 048
     Dates: start: 201611
  5. FLUCLOXACILLIN [Concomitant]
     Active Substance: FLUCLOXACILLIN
     Indication: PARONYCHIA
     Dosage: 2000 MILLIGRAM, QD, 0.25 DAY
     Route: 048
     Dates: start: 20161110, end: 20161117
  6. FLUCLOXACILLIN [Concomitant]
     Active Substance: FLUCLOXACILLIN
     Indication: PYREXIA
     Dosage: 500 MILLIGRAM, QD, 0.25 DAY
     Route: 048
     Dates: start: 20180910, end: 20180912
  7. FLUCLOXACILLIN [Concomitant]
     Active Substance: FLUCLOXACILLIN
     Indication: CELLULITIS
     Dosage: 2000 MILLIGRAM, QD, 0.25 DAY
     Route: 048
     Dates: start: 20180915, end: 20180921
  8. FLUCLOXACILLIN [Concomitant]
     Active Substance: FLUCLOXACILLIN
     Dosage: 500 MILLIGRAM
     Route: 048
     Dates: start: 20180915, end: 20180921
  9. MORPHINE SULFATE. [Concomitant]
     Active Substance: MORPHINE SULFATE
     Indication: BACK PAIN
     Dosage: 30 MILLIGRAM, QD
     Route: 048
     Dates: start: 201504
  10. MORPHINE SULFATE. [Concomitant]
     Active Substance: MORPHINE SULFATE
     Dosage: 40 MILLIGRAM, QD
     Route: 048
     Dates: start: 20171224
  11. GABAPENTIN. [Concomitant]
     Active Substance: GABAPENTIN
     Dosage: 3.6 GRAM, QD, 0.33 DAY
     Route: 048
  12. AMOXICILLIN. [Concomitant]
     Active Substance: AMOXICILLIN
     Indication: LOWER RESPIRATORY TRACT INFECTION
     Dosage: 500 MILLIGRAM, 0.33 DAY
     Route: 048
     Dates: start: 20190414
  13. AMOXICILLIN. [Concomitant]
     Active Substance: AMOXICILLIN
     Dosage: UNK
  14. AMOXICILLIN. [Concomitant]
     Active Substance: AMOXICILLIN
     Dosage: 1000 MILLIGRAM, 0.33 DAY
     Route: 048
     Dates: start: 20180701, end: 20180711
  15. DOXYCYCLINE. [Concomitant]
     Active Substance: DOXYCYCLINE
     Dosage: 100 MILLIGRAM, QD
     Route: 048
     Dates: start: 20170112, end: 20170118
  16. CLARITHROMYCIN. [Concomitant]
     Active Substance: CLARITHROMYCIN
     Indication: CELLULITIS
     Dosage: 500 MILLIGRAM, BID
     Route: 048
     Dates: start: 20191219, end: 20191221
  17. CLARITHROMYCIN. [Concomitant]
     Active Substance: CLARITHROMYCIN
     Dosage: 500 MILLIGRAM, BID
     Route: 048
     Dates: start: 20200611, end: 20200611
  18. CLARITHROMYCIN. [Concomitant]
     Active Substance: CLARITHROMYCIN
     Dosage: 500 MILLIGRAM, BID
     Route: 048
     Dates: start: 20180701, end: 20180711
  19. CLARITHROMYCIN. [Concomitant]
     Active Substance: CLARITHROMYCIN
     Indication: PYREXIA
  20. DEXAMETHASONE. [Concomitant]
     Active Substance: DEXAMETHASONE
     Dosage: 16 MILLIGRAM, QD
     Route: 048
     Dates: start: 20151008, end: 20151020
  21. DEXAMETHASONE. [Concomitant]
     Active Substance: DEXAMETHASONE
     Dosage: 2 MILLIGRAM, QD
     Route: 048
     Dates: start: 20151125, end: 20151202
  22. LISINOPRIL. [Concomitant]
     Active Substance: LISINOPRIL
     Dosage: 2.5 MILLIGRAM,
     Route: 048
     Dates: start: 20161110
  23. MEROPENEM. [Concomitant]
     Active Substance: MEROPENEM
     Indication: PYREXIA
     Dosage: 3 GRAM, QD, 0.33 DAY
     Route: 042
     Dates: start: 20180813, end: 20180814
  24. METRONIDAZOLE. [Concomitant]
     Active Substance: METRONIDAZOLE
     Indication: OSTEOMYELITIS
     Dosage: UNK
     Route: 048
     Dates: start: 20170701, end: 20170708
  25. METRONIDAZOLE. [Concomitant]
     Active Substance: METRONIDAZOLE
     Dosage: 400 MILLIGRAM, 0.25 DAY
     Route: 048
     Dates: start: 20180915, end: 20180921
  26. METRONIDAZOLE. [Concomitant]
     Active Substance: METRONIDAZOLE
     Dosage: UNK
     Route: 048
     Dates: start: 20170701, end: 20170708
  27. DOXYCLINE                          /00055701/ [Concomitant]
     Active Substance: DOXYCYCLINE
     Indication: ORAL HERPES
     Dosage: 200 MILLIGRAM, QD
     Route: 048
     Dates: start: 20191223, end: 20191230
  28. LANSOPRAZOLE. [Concomitant]
     Active Substance: LANSOPRAZOLE
     Indication: PRODUCT USED FOR UNKNOWN INDICATION
     Dosage: 15 MILLIGRAM, QD
     Route: 048
     Dates: start: 2001
  29. PROMETHAZINE HYDROCHLORIDE. [Concomitant]
     Active Substance: PROMETHAZINE HYDROCHLORIDE
     Indication: HYPOTHYROIDISM
     Dosage: 25 MILLIGRAM, QD
     Route: 048
  30. PROMETHAZINE HYDROCHLORIDE. [Concomitant]
     Active Substance: PROMETHAZINE HYDROCHLORIDE
     Dosage: 50 MILLIGRAM, QD
     Route: 048
  31. CLINDAMYCIN. [Concomitant]
     Active Substance: CLINDAMYCIN
     Indication: STAPHYLOCOCCAL INFECTION
     Dosage: 4.8 GRAM, QD
     Route: 042
     Dates: start: 20190611, end: 20190621
  32. NAPROXEN. [Concomitant]
     Active Substance: NAPROXEN
     Indication: PRODUCT USED FOR UNKNOWN INDICATION
     Dosage: 500 MILLIGRAM, QD, 0.5 DAY
     Route: 048
  33. MAGNESIUM ASPARTATE [Concomitant]
     Active Substance: MAGNESIUM ASPARTATE
     Indication: HYPOMAGNESAEMIA
     Dosage: 6.5 GRAM, BID (0.5 DAY)
     Route: 048
     Dates: start: 20191111
  34. PREDNISOLONE. [Concomitant]
     Active Substance: PREDNISOLONE
     Dosage: 30 MILLIGRAM, QD
     Route: 048
     Dates: start: 20200625, end: 20200629
  35. TAZOCIN [Concomitant]
     Active Substance: PIPERACILLIN SODIUM\TAZOBACTAM SODIUM
     Indication: CELLULITIS
     Dosage: 4.5 MILLIGRAM, 0.33 DAY
     Route: 042
     Dates: start: 20191221, end: 20191227
  36. FUROSEMIDE. [Concomitant]
     Active Substance: FUROSEMIDE
     Dosage: 20 MILLIGRAM, QD
     Route: 048
     Dates: start: 20191113, end: 20191116
  37. CODEINE [Concomitant]
     Active Substance: CODEINE
     Dosage: 150 MILLIGRAM, QD
     Route: 048
     Dates: start: 201507
  38. EXEMESTANE. [Suspect]
     Active Substance: EXEMESTANE
     Indication: HER2 POSITIVE BREAST CANCER
     Dosage: UNK
     Route: 065
  39. FEMARA [Suspect]
     Active Substance: LETROZOLE
     Indication: BREAST CANCER
     Dosage: 2.5 MILLIGRAM, QD
     Route: 048
     Dates: start: 201507, end: 20170427
  40. VITAMIN D3 [Concomitant]
     Active Substance: CHOLECALCIFEROL
     Indication: BONE DISORDER
     Dosage: 400 INTERNATIONAL UNIT, QD
     Route: 048
     Dates: start: 20150827
  41. FRUSEMIDE                          /00032601/ [Concomitant]
     Active Substance: FUROSEMIDE
     Dosage: 40 MILLIGRAM, QD
     Route: 048
     Dates: start: 20200626
  42. FLUCLOXACILLIN [Concomitant]
     Active Substance: FLUCLOXACILLIN
     Indication: PYREXIA
     Dosage: 1 GRAM, 0.25 DAY
     Route: 042
     Dates: start: 20180912, end: 20180915
  43. AMOXICILLIN. [Concomitant]
     Active Substance: AMOXICILLIN
     Dosage: 1 GRAM
     Route: 042
     Dates: start: 20191218, end: 20191219
  44. DOXYCYCLINE. [Concomitant]
     Active Substance: DOXYCYCLINE
     Dosage: 100 MILLIGRAM, BID (0.5 DAY)
     Route: 048
     Dates: start: 20180814, end: 20180814
  45. CLARITHROMYCIN. [Concomitant]
     Active Substance: CLARITHROMYCIN
     Indication: LOWER RESPIRATORY TRACT INFECTION
     Dosage: 500 MILLIGRAM, BID
     Route: 048
     Dates: start: 20180701, end: 20180711
  46. CLARITHROMYCIN. [Concomitant]
     Active Substance: CLARITHROMYCIN
     Indication: PYREXIA
     Dosage: 1000 MILLIGRAM, QD, 0.5 DAY
     Route: 048
     Dates: start: 20190415
  47. CLARITHROMYCIN. [Concomitant]
     Active Substance: CLARITHROMYCIN
     Dosage: 500 MILLIGRAM, BID
     Route: 048
     Dates: start: 20191111, end: 20191118
  48. CLARITHROMYCIN. [Concomitant]
     Active Substance: CLARITHROMYCIN
     Dosage: 500 MILLIGRAM, BID
     Route: 048
     Dates: start: 20200622, end: 20200622
  49. CYCLIZINE [Concomitant]
     Active Substance: CYCLIZINE
     Dosage: 50 MILLIGRAM, 0.33 DAY
     Route: 048
     Dates: start: 201507
  50. DIAZEPAM. [Concomitant]
     Active Substance: DIAZEPAM
     Indication: MUSCULOSKELETAL STIFFNESS
     Dosage: UNK
  51. CLINDAMYCIN. [Concomitant]
     Active Substance: CLINDAMYCIN
     Indication: CELLULITIS
     Dosage: 4.8 GRAM, QD, 0.25 DAY
     Route: 042
     Dates: start: 20200206, end: 20200212
  52. LEVOTHYROXINE. [Concomitant]
     Active Substance: LEVOTHYROXINE
     Indication: HYPOTHYROIDISM
     Dosage: 50 MICROGRAM, QD
     Route: 048
     Dates: start: 20200311
  53. ZANAMIVIR [Concomitant]
     Active Substance: ZANAMIVIR
     Dosage: 10 MILLIGRAM, 0.5 DAY
     Route: 045
     Dates: start: 20191218, end: 20191219
  54. BLOOD [Concomitant]
     Active Substance: WHOLE BLOOD
     Dosage: 2 UNIT
     Route: 042
     Dates: start: 20200718, end: 20200718
  55. TINZAPARIN [Concomitant]
     Active Substance: TINZAPARIN
     Dosage: 20000 INTERNATIONAL UNIT
     Route: 058
     Dates: start: 20190928
  56. TINZAPARIN [Concomitant]
     Active Substance: TINZAPARIN
     Dosage: 22000 INTERNATIONAL UNIT, QD
     Route: 058
     Dates: start: 20200622
  57. BENZYLPENICILLIN [Concomitant]
     Active Substance: PENICILLIN G
     Indication: PYREXIA
     Dosage: 1.2 GRAM, 0.25 DAY
     Route: 042
     Dates: start: 20180912, end: 20180915
  58. CIPROFLOXACIN. [Concomitant]
     Active Substance: CIPROFLOXACIN
     Dosage: 750 MILLIGRAM, 0.5 DAY
     Route: 048
     Dates: start: 20190205, end: 20190206
  59. DENOSUMAB [Concomitant]
     Active Substance: DENOSUMAB
     Dosage: 120 MILLIGRAM
     Route: 058
     Dates: start: 20180118
  60. TRASTUZUMAB. [Suspect]
     Active Substance: TRASTUZUMAB
     Indication: HER2 POSITIVE BREAST CANCER
     Dosage: 600 MILLIGRAM, MONTHLY
     Route: 058
     Dates: start: 20150716, end: 20171222
  61. XGEVA [Suspect]
     Active Substance: DENOSUMAB
     Indication: METASTASES TO BONE
     Dosage: 120 MILLIGRAM, Q28D
     Route: 058
     Dates: start: 20170604, end: 20170613
  62. TRASTUZUMAB EMTANSINE [Suspect]
     Active Substance: ADO-TRASTUZUMAB EMTANSINE
     Indication: HER2 POSITIVE BREAST CANCER
     Dosage: 420 MILLIGRAM (4 WEEK)
     Route: 042
     Dates: start: 20180118
  63. FRUSEMIDE                          /00032601/ [Concomitant]
     Active Substance: FUROSEMIDE
     Dosage: 40 MILLIGRAM, 0.5 DAY,20 MILLIGRAM, TWO TIMES A DAY
     Route: 042
     Dates: start: 20200623, end: 20200626
  64. AMITRIPTYLIN [Concomitant]
     Active Substance: AMITRIPTYLINE
     Indication: HERPES ZOSTER
     Dosage: 10 MILLIGRAM, QD
     Route: 048
     Dates: start: 20160727, end: 20160809
  65. AMITRIPTYLIN [Concomitant]
     Active Substance: AMITRIPTYLINE
     Dosage: UNK
  66. MORPHINE SULFATE. [Concomitant]
     Active Substance: MORPHINE SULFATE
     Dosage: 10 MILLIGRAM
     Route: 048
     Dates: start: 20171224
  67. AMOXICILLIN. [Concomitant]
     Active Substance: AMOXICILLIN
     Indication: LOWER RESPIRATORY TRACT INFECTION
     Dosage: 1 GRAM, 0.33 DAY
     Route: 042
     Dates: start: 20191111, end: 20191115
  68. DOXYCYCLINE. [Concomitant]
     Active Substance: DOXYCYCLINE
     Indication: PNEUMONIA
     Dosage: 200 MILLIGRAM, QD, 0.5 DAY
     Route: 048
     Dates: start: 20180814, end: 20180814
  69. CLARITHROMYCIN. [Concomitant]
     Active Substance: CLARITHROMYCIN
     Indication: LOWER RESPIRATORY TRACT INFECTION
     Dosage: 500 MILLIGRAM, 0.5 DAY
     Route: 042
     Dates: start: 20190611, end: 20190611
  70. DEXAMETHASONE. [Concomitant]
     Active Substance: DEXAMETHASONE
     Indication: METASTASES TO BONE
     Dosage: 4 MILLIGRAM, QD
     Route: 048
     Dates: start: 20151111, end: 20151117
  71. MEROPENEM. [Concomitant]
     Active Substance: MEROPENEM
     Dosage: 1 GRAM,0.33 DAY
     Route: 042
     Dates: start: 20180813, end: 20180814
  72. METRONIDAZOLE. [Concomitant]
     Active Substance: METRONIDAZOLE
     Indication: CELLULITIS
     Dosage: UNK
     Route: 048
  73. LOPERAMIDE [Concomitant]
     Active Substance: LOPERAMIDE
     Indication: DIARRHOEA
     Dosage: UNK
     Route: 065
     Dates: start: 201804, end: 2019
  74. DERMOL                             /01330701/ [Concomitant]
     Dosage: UNK, ONCE A DAY
     Route: 061
  75. COTRIMOXAZOLE [Concomitant]
     Active Substance: SULFAMETHOXAZOLE\TRIMETHOPRIM
     Dosage: 960 MILLIGRAM
     Route: 048
     Dates: start: 20190206, end: 20190211
  76. CO?AMOXICLAV                       /01000301/ [Concomitant]
     Active Substance: AMOXICILLIN\CLAVULANATE POTASSIUM
     Dosage: UNK
     Route: 048
     Dates: start: 20190322
  77. BLOOD [Concomitant]
     Active Substance: WHOLE BLOOD
     Indication: ANAEMIA
     Dosage: UNK
     Route: 042
     Dates: start: 20181022, end: 20181022
  78. BLOOD [Concomitant]
     Active Substance: WHOLE BLOOD
     Dosage: 3 UNIT
     Route: 042
     Dates: start: 20200501, end: 20200501
  79. TINZAPARIN [Concomitant]
     Active Substance: TINZAPARIN
     Indication: DEEP VEIN THROMBOSIS
     Dosage: UNK, QD(20000 UNIT)
     Route: 058
     Dates: start: 20190928
  80. TINZAPARIN [Concomitant]
     Active Substance: TINZAPARIN
     Dosage: 22000 INTERNATIONAL UNIT, QD
     Route: 058
     Dates: start: 20200624, end: 20200624
  81. BENZYLPENICILLIN [Concomitant]
     Active Substance: PENICILLIN G
     Indication: CELLULITIS
     Dosage: UNK
  82. CODEINE [Concomitant]
     Active Substance: CODEINE
     Indication: PRODUCT USED FOR UNKNOWN INDICATION
     Dosage: 30 MILLIGRAM, PRN
     Route: 048
     Dates: start: 201504
  83. LETROZOLE. [Suspect]
     Active Substance: LETROZOLE
     Indication: BREAST CANCER METASTATIC
     Dosage: 2.5 MILLIGRAM, QD
     Route: 048
     Dates: start: 201507, end: 20170427
  84. FLUCLOXACILLIN [Concomitant]
     Active Substance: FLUCLOXACILLIN
     Dosage: 2000 MILLIGRAM ONCE A DAY, (500 MILLIGRAM, 4 TIMES A DAY)
     Route: 048
     Dates: start: 20161110, end: 20161117
  85. FLUCLOXACILLIN [Concomitant]
     Active Substance: FLUCLOXACILLIN
     Indication: CELLULITIS
     Dosage: 4 GRAM, ,QD, 0.25 DAY
     Route: 042
     Dates: start: 20180912, end: 20180915
  86. CITALOPRAM [Concomitant]
     Active Substance: CITALOPRAM HYDROBROMIDE
     Indication: PRODUCT USED FOR UNKNOWN INDICATION
     Dosage: 40 MILLIGRAM, QD
     Route: 048
     Dates: start: 2005
  87. AMOXICILLIN. [Concomitant]
     Active Substance: AMOXICILLIN
     Dosage: 3000 MILLIGRAM, ONCE A DAY (1000MG (0.33 DAY))
     Route: 048
     Dates: start: 20170701, end: 20170706
  88. DOXYCLINE                          /00055701/ [Concomitant]
     Active Substance: DOXYCYCLINE
     Indication: LOWER RESPIRATORY TRACT INFECTION
     Dosage: 100 MILLIGRAM, QD
     Route: 048
     Dates: start: 20170112, end: 20170118
  89. PARACETAMOL [Concomitant]
     Active Substance: ACETAMINOPHEN
     Indication: PRODUCT USED FOR UNKNOWN INDICATION
     Dosage: 500 MILLIGRAM
     Route: 048
     Dates: start: 201504
  90. VANCOMYCIN [Concomitant]
     Active Substance: VANCOMYCIN
     Indication: CELLULITIS
     Dosage: 1.5 GRAM, 0.5 DAY
     Route: 042
     Dates: start: 20200201, end: 20200206
  91. LINEZOLID. [Concomitant]
     Active Substance: LINEZOLID
     Indication: CELLULITIS
     Dosage: 600 MILLIGRAM, 0.5 DAY
     Route: 042
     Dates: start: 20200206, end: 20200212
  92. COTRIMOXAZOLE [Concomitant]
     Active Substance: SULFAMETHOXAZOLE\TRIMETHOPRIM
     Indication: SEPSIS
     Dosage: 1 DOSAGE FORM, 0.5 DAY
     Route: 048
     Dates: start: 20181015, end: 20181022
  93. TAZOCIN [Concomitant]
     Active Substance: PIPERACILLIN SODIUM\TAZOBACTAM SODIUM
     Indication: PNEUMONIA
     Dosage: 4.5 MILLIGRAM, 0.33 DAY
     Route: 042
     Dates: start: 20200202, end: 20200206
  94. FUROSEMIDE. [Concomitant]
     Active Substance: FUROSEMIDE
     Dosage: 40 MILLIGRAM, 0.5 DAY
     Route: 042
     Dates: start: 20200623, end: 20200626
  95. TEICOPLANIN [Concomitant]
     Active Substance: TEICOPLANIN
     Indication: PYREXIA
     Dosage: 600 MILLIGRAM, 0.5 DAY
     Route: 042
     Dates: start: 20181019, end: 20181025
  96. DENOSUMAB [Concomitant]
     Active Substance: DENOSUMAB
     Indication: METASTASES TO BONE
     Dosage: 120 MILLIGRAM
     Route: 058
     Dates: start: 20170604, end: 20170613
  97. TAZOBACTAM [Concomitant]
     Active Substance: TAZOBACTAM
     Indication: PRODUCT USED FOR UNKNOWN INDICATION
     Dosage: UNK
  98. EXEMESTANE. [Suspect]
     Active Substance: EXEMESTANE
     Indication: BREAST CANCER METASTATIC
     Dosage: 25 MILLIGRAM, QD
     Route: 048
     Dates: start: 20170428, end: 20180110
  99. EXEMESTANE. [Suspect]
     Active Substance: EXEMESTANE
     Indication: BREAST CANCER
  100. VORHYALURONIDASE ALFA [Suspect]
     Active Substance: HYALURONIDASE (HUMAN RECOMBINANT)
     Indication: HER2 POSITIVE BREAST CANCER
     Dosage: 600 MILLIGRAM, MONTHLY
     Route: 058
     Dates: start: 20150716, end: 20171222
  101. ZOMORPH [Concomitant]
     Active Substance: MORPHINE SULFATE
     Indication: PAIN
     Dosage: 60 MILLIGRAM, QD, 0.5 DAY
     Route: 048
     Dates: start: 201611
  102. FRUSEMIDE                          /00032601/ [Concomitant]
     Active Substance: FUROSEMIDE
     Indication: LYMPHOEDEMA
     Dosage: 80 MILLIGRAM, QD
     Route: 048
     Dates: start: 20151112, end: 20151118
  103. FRUSEMIDE                          /00032601/ [Concomitant]
     Active Substance: FUROSEMIDE
     Indication: OEDEMA
     Dosage: 40 MILLIGRAM, QD
     Route: 042
     Dates: start: 20200622, end: 20200623
  104. ACYCLOVIR                          /00587301/ [Concomitant]
     Active Substance: ACYCLOVIR
     Indication: HERPES ZOSTER
     Dosage: 800 MILLIGRAM (5)
     Route: 061
     Dates: start: 20161213, end: 20161218
  105. ACYCLOVIR                          /00587301/ [Concomitant]
     Active Substance: ACYCLOVIR
     Indication: HERPES ZOSTER
     Dosage: 800 MILLIGRAM
     Route: 048
     Dates: start: 20160727, end: 20160807
  106. AMOXICILLIN. [Concomitant]
     Active Substance: AMOXICILLIN
     Dosage: 1000 MILLIGRAM, 0.33 DAY
     Route: 048
     Dates: start: 20170701, end: 20170706
  107. DOXYCYCLINE. [Concomitant]
     Active Substance: DOXYCYCLINE
     Indication: LOWER RESPIRATORY TRACT INFECTION
     Dosage: 100 MILLIGRAM, 0.5 QD
     Route: 048
     Dates: start: 20170112, end: 20170118
  108. DEXAMETHASONE. [Concomitant]
     Active Substance: DEXAMETHASONE
     Dosage: 8 MILLIGRAM, QD
     Route: 048
     Dates: start: 20151104, end: 20151110
  109. DEXAMETHASONE. [Concomitant]
     Active Substance: DEXAMETHASONE
     Dosage: 2 MILLIGRAM, QD
     Route: 048
     Dates: start: 20151118, end: 20151124
  110. CYCLIZINE [Concomitant]
     Active Substance: CYCLIZINE
     Indication: PRODUCT USED FOR UNKNOWN INDICATION
     Dosage: 150 MILLIGRAM, QD, 0.33 DAY
     Route: 048
     Dates: start: 201507
  111. DOXYCLINE                          /00055701/ [Concomitant]
     Active Substance: DOXYCYCLINE
     Indication: PYREXIA
     Dosage: 100 MILLIGRAM, QD
     Route: 048
     Dates: start: 20180815
  112. DOXYCLINE                          /00055701/ [Concomitant]
     Active Substance: DOXYCYCLINE
     Indication: HERPES ZOSTER
     Dosage: 100 MILLIGRAM, BID (0.5 DAY)
     Route: 048
     Dates: start: 20180814, end: 20180814
  113. DOXYCLINE                          /00055701/ [Concomitant]
     Active Substance: DOXYCYCLINE
     Dosage: 900 MILLIGRAM, QD
     Route: 048
     Dates: start: 20170112, end: 20170118
  114. HYOSCINE BUTYLBROMIDE [Concomitant]
     Active Substance: BUTYLSCOPOLAMINE BROMIDE
     Indication: NAUSEA
     Dosage: 10 MILLIGRAM, QD, 0.33 DAY
     Route: 048
     Dates: start: 20181222
  115. CLINDAMYCIN. [Concomitant]
     Active Substance: CLINDAMYCIN
     Dosage: UNK
  116. NAPROXEN. [Concomitant]
     Active Substance: NAPROXEN
     Dosage: 250 MILLIGRAM,0.5 DAY
     Route: 048
  117. LINEZOLID. [Concomitant]
     Active Substance: LINEZOLID
     Indication: PYREXIA
     Dosage: 600 MILLIGRAM, 0.5 DAY
     Route: 048
     Dates: start: 20181223, end: 20181227
  118. COTRIMOXAZOLE [Concomitant]
     Active Substance: SULFAMETHOXAZOLE\TRIMETHOPRIM
     Indication: SEPSIS
     Dosage: 960 MILLIGRAM, BID (0.5 DAY)
     Route: 042
     Dates: start: 20190611, end: 20190611
  119. BLOOD [Concomitant]
     Active Substance: WHOLE BLOOD
     Dosage: UNK
  120. FERROUS SULFATE. [Concomitant]
     Active Substance: FERROUS SULFATE
     Indication: ANAEMIA
     Dosage: 200 MILLIGRAM, QD
     Route: 048
     Dates: start: 20200804
  121. FUROSEMIDE. [Concomitant]
     Active Substance: FUROSEMIDE
     Dosage: 40 MILLIGRAM, 0.5 DAY
     Route: 042
     Dates: start: 20200622, end: 20200623
  122. TRASTUZUMAB. [Suspect]
     Active Substance: TRASTUZUMAB
     Indication: BREAST CANCER
     Dosage: UNK
  123. FLUCLOXACILLIN [Concomitant]
     Active Substance: FLUCLOXACILLIN
     Dosage: 2000 MILLIGRAM, QD
     Route: 048
     Dates: start: 20180910, end: 20180912
  124. FLUCLOXACILLIN [Concomitant]
     Active Substance: FLUCLOXACILLIN
     Indication: PARONYCHIA
  125. MORPHINE SULFATE. [Concomitant]
     Active Substance: MORPHINE SULFATE
     Dosage: 60 MILLIGRAM
     Route: 048
     Dates: start: 201504, end: 20160516
  126. MORPHINE SULFATE. [Concomitant]
     Active Substance: MORPHINE SULFATE
     Dosage: 40 MILLIGRAM
     Route: 048
     Dates: start: 20150516, end: 201611
  127. GABAPENTIN. [Concomitant]
     Active Substance: GABAPENTIN
     Indication: PRODUCT USED FOR UNKNOWN INDICATION
     Dosage: 300 MILLIGRAM, TID
     Route: 048
     Dates: start: 20151231
  128. AMOXICILLIN. [Concomitant]
     Active Substance: AMOXICILLIN
     Dosage: 1000 MILLIGRAM, QD
     Route: 048
     Dates: start: 20180701, end: 20180711
  129. AMOXICILLIN. [Concomitant]
     Active Substance: AMOXICILLIN
     Indication: OSTEOMYELITIS
     Dosage: 1 GRAM, 0.33 DAY
     Route: 042
     Dates: start: 20200622, end: 20200626
  130. LISINOPRIL. [Concomitant]
     Active Substance: LISINOPRIL
     Indication: EJECTION FRACTION DECREASED
     Dosage: 7.5 MILLIGRAM, QD, 0.33 DAY
     Route: 048
     Dates: start: 20161110
  131. ZOMETA [Concomitant]
     Active Substance: ZOLEDRONIC ACID
     Indication: BONE DISORDER
     Dosage: 4 MILLIGRAM, Q4MO
     Route: 042
     Dates: start: 20150827, end: 20160314
  132. DOXYCLINE                          /00055701/ [Concomitant]
     Active Substance: DOXYCYCLINE
     Dosage: 100 MILLIGRAM, BID (0.5 DAY)
     Route: 048
     Dates: start: 20190929, end: 20191005
  133. CLINDAMYCIN. [Concomitant]
     Active Substance: CLINDAMYCIN
     Dosage: 1.2 GRAM, 0.25 DAY
     Route: 042
     Dates: start: 20190611, end: 20190621
  134. BLOOD [Concomitant]
     Active Substance: WHOLE BLOOD
     Dosage: 3 UNIT
     Route: 042
     Dates: start: 20200501, end: 20200501
  135. BLOOD [Concomitant]
     Active Substance: WHOLE BLOOD
     Dosage: 2 UNIT
     Route: 042
     Dates: start: 20200622, end: 20200622
  136. BLOOD [Concomitant]
     Active Substance: WHOLE BLOOD
     Dosage: 3 UNIT
     Route: 042
     Dates: start: 20200613, end: 20200613
  137. BLOOD [Concomitant]
     Active Substance: WHOLE BLOOD
     Dosage: 2 UNIT
     Route: 042
     Dates: start: 20200611, end: 20200611
  138. BLOOD [Concomitant]
     Active Substance: WHOLE BLOOD
     Dosage: 2 UNITS
     Route: 042
     Dates: start: 20190611, end: 20190611
  139. RIFAMPICIN CHEMIPHAR [Concomitant]
     Dosage: 300 MILLIGRAM, 0.5 DAY
     Route: 048
     Dates: start: 20200212, end: 20200212
  140. PIPERACILLIN AND TAZOBACTAM [Concomitant]
     Active Substance: PIPERACILLIN SODIUM\TAZOBACTAM SODIUM
     Indication: PRODUCT USED FOR UNKNOWN INDICATION
     Dosage: UNK
     Route: 065
  141. ACIDEX                             /01521901/ [Concomitant]
     Active Substance: CALCIUM CARBONATE\SODIUM ALGINATE\SODIUM BICARBONATE
     Dosage: UNK
  142. TRASTUZUMAB. [Suspect]
     Active Substance: TRASTUZUMAB
     Indication: BREAST CANCER METASTATIC
     Dosage: 420 MILLIGRAM, 4 WEEK
     Route: 042
     Dates: start: 20200118
  143. ZOMORPH [Concomitant]
     Active Substance: MORPHINE SULFATE
     Indication: METASTASES TO BONE
     Dosage: 30 MILLIGRAM,0.5 DAY
     Route: 048
     Dates: start: 201611
  144. FRUSEMIDE                          /00032601/ [Concomitant]
     Active Substance: FUROSEMIDE
     Indication: OEDEMA
     Dosage: 20 MILLIGRAM, QD
     Route: 048
     Dates: start: 20151113, end: 20191116
  145. FRUSEMIDE                          /00032601/ [Concomitant]
     Active Substance: FUROSEMIDE
     Dosage: 40 MILLIGRAM, QD
     Route: 048
     Dates: start: 20151117
  146. FRUSEMIDE                          /00032601/ [Concomitant]
     Active Substance: FUROSEMIDE
     Dosage: 40 MILLIGRAM, 0.5 DAY
     Route: 042
     Dates: start: 20200626
  147. AMOXICILLIN. [Concomitant]
     Active Substance: AMOXICILLIN
     Indication: OSTEOMYELITIS
     Dosage: 1 GRAM, 0.33 DAY
     Route: 048
     Dates: start: 20191115, end: 20191118
  148. AMOXICILLIN. [Concomitant]
     Active Substance: AMOXICILLIN
     Dosage: 1 GRAM, 0.33 DAY
     Route: 048
     Dates: start: 20191219, end: 20191221
  149. AMOXICILLIN. [Concomitant]
     Active Substance: AMOXICILLIN
     Dosage: 1 GRAM, 0.33 DAY
     Route: 048
     Dates: start: 20200626, end: 20200628
  150. CLARITHROMYCIN. [Concomitant]
     Active Substance: CLARITHROMYCIN
     Dosage: 500 MILLIGRAM, QD, 0.5 DAY
     Route: 048
     Dates: start: 20190415
  151. DEXAMETHASONE. [Concomitant]
     Active Substance: DEXAMETHASONE
     Dosage: 8 MILLIGRAM, QD
     Route: 048
     Dates: start: 20151020, end: 20151103
  152. DEXAMETHASONE. [Concomitant]
     Active Substance: DEXAMETHASONE
     Dosage: 1 MILLIGRAM, BID
     Route: 048
     Dates: start: 20151125, end: 20151202
  153. MEROPENEM. [Concomitant]
     Active Substance: MEROPENEM
     Dosage: 1 GRAM, 0.33 DAY
     Route: 042
     Dates: start: 20181222, end: 20181227
  154. METRONIDAZOLE. [Concomitant]
     Active Substance: METRONIDAZOLE
     Indication: PYREXIA
     Dosage: 1600 MILLIGRAM, QD, 0.25 DAY
     Route: 048
     Dates: start: 20180915, end: 20180921
  155. PROMETHAZINE HYDROCHLORIDE. [Concomitant]
     Active Substance: PROMETHAZINE HYDROCHLORIDE
     Dosage: UNK
     Route: 048
  156. DIAZEPAM. [Concomitant]
     Active Substance: DIAZEPAM
     Dosage: 6 MILLIGRAM, QD, 0.33 DAY
     Route: 048
     Dates: start: 20180105
  157. DIAZEPAM. [Concomitant]
     Active Substance: DIAZEPAM
     Dosage: 2 MILLIGRAM, 0.33 DAY
     Route: 048
     Dates: start: 20180105
  158. PEPTAC                             /01521901/ [Concomitant]
     Active Substance: CALCIUM CARBONATE\SODIUM ALGINATE\SODIUM BICARBONATE
     Indication: DYSPEPSIA
     Dosage: 15 MILLILITER
     Route: 048
  159. HYOSCINE BUTYLBROMIDE [Concomitant]
     Active Substance: BUTYLSCOPOLAMINE BROMIDE
     Dosage: 10 MILLIGRAM, 0.33 DAY
     Route: 048
     Dates: start: 20181222
  160. CLINDAMYCIN. [Concomitant]
     Active Substance: CLINDAMYCIN
     Indication: CELLULITIS
     Dosage: 1.2 GRAM, TID, 0.33 DAY
     Route: 042
     Dates: start: 20200206, end: 20200212
  161. INHIXA [Concomitant]
     Active Substance: ENOXAPARIN SODIUM
     Indication: THROMBOSIS PROPHYLAXIS
     Dosage: 40 MILLIGRAM, QD
     Route: 058
     Dates: start: 20190610, end: 20190623
  162. DERMOL                             /01330701/ [Concomitant]
     Indication: PRODUCT USED FOR UNKNOWN INDICATION
     Dosage: 4 DOSAGE FORM, QD, 0.25 DAY
     Route: 061
  163. BLOOD [Concomitant]
     Active Substance: WHOLE BLOOD
     Dosage: 2 UNIT
     Route: 042
     Dates: start: 20191112, end: 20191112
  164. BLOOD [Concomitant]
     Active Substance: WHOLE BLOOD
     Dosage: 2 UNIT
     Route: 042
     Dates: start: 20181022, end: 20181022
  165. TINZAPARIN [Concomitant]
     Active Substance: TINZAPARIN
     Dosage: 2000 INTERNATIONAL UNIT
     Route: 058
     Dates: start: 20200624, end: 20200624
  166. FUROSEMIDE. [Concomitant]
     Active Substance: FUROSEMIDE
     Indication: OEDEMA
     Dosage: 80 MILLIGRAM, QD
     Route: 048
     Dates: start: 20151112, end: 20151118
  167. FUROSEMIDE. [Concomitant]
     Active Substance: FUROSEMIDE
     Indication: OEDEMA
     Dosage: 40 MILLIGRAM, 0.5 DAY
     Route: 042
     Dates: start: 20200626
  168. PIPERACILLIN. [Concomitant]
     Active Substance: PIPERACILLIN SODIUM
     Indication: PRODUCT USED FOR UNKNOWN INDICATION
     Dosage: UNK
  169. TRASTUZUMAB. [Suspect]
     Active Substance: TRASTUZUMAB
     Dosage: 420 MILLIGRAM, Q28D
     Route: 042
  170. FLUCLOXACILLIN [Concomitant]
     Active Substance: FLUCLOXACILLIN
     Dosage: 500 MILLIGRAM
     Route: 048
     Dates: start: 20161110, end: 20161117
  171. GABAPENTIN. [Concomitant]
     Active Substance: GABAPENTIN
     Dosage: 1.2 GRAM, 0.33 DAY
     Route: 048
  172. AMOXICILLIN. [Concomitant]
     Active Substance: AMOXICILLIN
     Dosage: 500 MILLIGRAM, QD
     Route: 048
     Dates: start: 20180701, end: 20180711
  173. AMOXICILLIN. [Concomitant]
     Active Substance: AMOXICILLIN
     Dosage: 3000 MILLIGRAM, QD, 0.33 DAY
     Route: 048
     Dates: start: 20180701, end: 20180711
  174. AMOXICILLIN. [Concomitant]
     Active Substance: AMOXICILLIN
     Dosage: 1500 MILLIGRAM, QD
     Route: 048
     Dates: start: 20180701, end: 20180711
  175. DOXYCYCLINE. [Concomitant]
     Active Substance: DOXYCYCLINE
     Indication: PYREXIA
     Dosage: 200 MILLIGRAM
     Route: 048
     Dates: start: 20191223, end: 20191230
  176. LANSOPRAZOLE. [Concomitant]
     Active Substance: LANSOPRAZOLE
     Dosage: 30 MILLIGRAM, QD
     Route: 048
  177. DIAZEPAM. [Concomitant]
     Active Substance: DIAZEPAM
     Indication: BACK PAIN
     Dosage: 6 MILLIGRAM, QD
     Route: 048
     Dates: start: 20180105
  178. CLINDAMYCIN. [Concomitant]
     Active Substance: CLINDAMYCIN
     Indication: STAPHYLOCOCCAL INFECTION
     Dosage: 4.8 GRAM, QD, 0.25 DAY
     Route: 042
     Dates: start: 20190611, end: 20190621
  179. DERMOL                             /01330701/ [Concomitant]
     Dosage: UNK,0.25 DAY
     Route: 061
  180. BLOOD [Concomitant]
     Active Substance: WHOLE BLOOD
     Dosage: 2 UNIT
     Route: 042
     Dates: start: 20160317, end: 20160317
  181. FUROSEMIDE. [Concomitant]
     Active Substance: FUROSEMIDE
     Dosage: 40 MILLIGRAM, QD
     Route: 048
     Dates: start: 20191117
  182. ACIDEX                             /01521901/ [Concomitant]
     Active Substance: CALCIUM CARBONATE\SODIUM ALGINATE\SODIUM BICARBONATE
     Indication: PRODUCT USED FOR UNKNOWN INDICATION
     Dosage: 15 MILLILITER
     Route: 048

REACTIONS (12)
  - Cellulitis [Recovered/Resolved]
  - Candida infection [Recovered/Resolved]
  - Klebsiella infection [Recovered/Resolved]
  - Infection [Not Recovered/Not Resolved]
  - Escherichia infection [Recovered/Resolved]
  - Sepsis [Recovered/Resolved]
  - Lower respiratory tract infection [Recovered/Resolved]
  - Pneumonia [Recovered/Resolved]
  - Constipation [Recovered/Resolved]
  - Diarrhoea [Recovered/Resolved]
  - Haemoptysis [Recovered/Resolved]
  - Pyrexia [Not Recovered/Not Resolved]

NARRATIVE: CASE EVENT DATE: 20180427
